FAERS Safety Report 17834598 (Version 1)
Quarter: 2020Q2

REPORT INFORMATION
  Report Type: Spontaneous
  Country: CN (occurrence: CN)
  Receive Date: 20200528
  Receipt Date: 20200528
  Transmission Date: 20200714
  Serious: Yes (Hospitalization)
  Sender: FDA-Public Use
  Company Number: CN-BAXTER-2020BAX010863

PATIENT
  Age: 10 Year
  Sex: Female

DRUGS (6)
  1. 0.9% SODIUM CHLORIDE INJECTION [Suspect]
     Active Substance: SODIUM CHLORIDE
     Dosage: VINCRISTINE SULFATE 1.5 MG + 0.9 % NS
     Route: 041
     Dates: start: 20200404, end: 20200405
  2. NUOXIN [Suspect]
     Active Substance: CISPLATIN
     Indication: MEDULLOBLASTOMA
     Dosage: NUOXIN + 0.9% NS
     Route: 041
     Dates: start: 20200403, end: 20200405
  3. 0.9% SODIUM CHLORIDE INJECTION [Suspect]
     Active Substance: SODIUM CHLORIDE
     Indication: MEDICATION DILUTION
     Dosage: CYCLOPHOSPHAMIDE 0.6 G + 0.9 % NS
     Route: 041
     Dates: start: 20200403, end: 20200404
  4. VINCRISTINE SULFATE. [Suspect]
     Active Substance: VINCRISTINE SULFATE
     Indication: MEDULLOBLASTOMA
     Dosage: VINCRISTINE SULFATE + 0.9% NS
     Route: 041
     Dates: start: 20200404, end: 20200405
  5. 0.9% SODIUM CHLORIDE INJECTION [Suspect]
     Active Substance: SODIUM CHLORIDE
     Dosage: NUOXIN 30 MG + 0.9 % NS
     Route: 041
     Dates: start: 20200403, end: 20200405
  6. ENDOXAN [Suspect]
     Active Substance: CYCLOPHOSPHAMIDE
     Indication: MEDULLOBLASTOMA
     Dosage: CYCLOPHOSPHAMIDE + 0.9 % NS
     Route: 041
     Dates: start: 20200403, end: 20200404

REACTIONS (1)
  - Bone marrow failure [Recovering/Resolving]

NARRATIVE: CASE EVENT DATE: 20200413
